FAERS Safety Report 5932117-4 (Version None)
Quarter: 2008Q4

REPORT INFORMATION
  Report Type: 
  Country: None (occurrence: None)
  Receive Date: 20081027
  Receipt Date: 20081027
  Transmission Date: 20090506
  Serious: No
  Sender: FDA-Public Use
  Company Number: None

PATIENT
  Age: 76 Year
  Sex: Male
  Weight: 97 kg

DRUGS (1)
  1. ELITEK [Suspect]
     Indication: BLOOD URIC ACID INCREASED
     Dosage: 13.5MG ONCE DAILY X 3 DAY INJ
     Dates: start: 20081017, end: 20081018

REACTIONS (2)
  - MEDICATION ERROR [None]
  - WRONG TECHNIQUE IN DRUG USAGE PROCESS [None]
